FAERS Safety Report 6434098-6 (Version None)
Quarter: 2009Q4

REPORT INFORMATION
  Report Type: 
  Country: None (occurrence: None)
  Receive Date: 20091110
  Receipt Date: 20080930
  Transmission Date: 20100525
  Serious: No
  Sender: FDA-Public Use
  Company Number: US-ASTRAZENECA-2009UW15310

PATIENT
  Age: 79 Year
  Sex: Female

DRUGS (2)
  1. PRILOSEC OTC [Suspect]
     Indication: GASTROOESOPHAGEAL REFLUX DISEASE
     Dosage: UNK DOSE, 1 /DAY
     Route: 048
     Dates: end: 20080929
  2. VITAMIN D [Concomitant]
     Dosage: UNKNOWN

REACTIONS (1)
  - BONE DENSITY DECREASED [None]
